FAERS Safety Report 4977051-1 (Version None)
Quarter: 2006Q2

REPORT INFORMATION
  Report Type: 
  Country: None (occurrence: None)
  Receive Date: 20060419
  Receipt Date: 20050909
  Transmission Date: 20061013
  Serious: Yes (Hospitalization, Other)
  Sender: FDA-Public Use
  Company Number: GB-NOVOPROD-246794

PATIENT
  Age: 85 Year
  Sex: Female
  Weight: 55 kg

DRUGS (8)
  1. LEVEMIR [Suspect]
     Indication: DIABETES MELLITUS INSULIN-DEPENDENT
     Dosage: 16 IU, QD
     Route: 058
     Dates: start: 20050511
  2. IRBESARTAN [Concomitant]
     Dosage: 300 MG, QD
     Route: 048
     Dates: start: 19990319
  3. ADALAT CC [Concomitant]
     Dosage: 60 MG, QD
     Route: 048
     Dates: start: 19990521
  4. ATENOLOL [Concomitant]
     Dosage: 25 MG, QD
     Route: 048
     Dates: start: 20030430
  5. SIMVASTATIN [Concomitant]
     Dosage: 10 MG, QD
     Route: 048
     Dates: start: 20030430
  6. THYROXIN [Concomitant]
     Dosage: 125 UG, QD
     Route: 048
     Dates: start: 19930901
  7. DOXAZOSIN [Concomitant]
     Dosage: 8 MG, QD
     Route: 048
     Dates: start: 20040113
  8. ASPIRIN [Concomitant]
     Dosage: 75 MG, QD
     Route: 048
     Dates: start: 20040223

REACTIONS (3)
  - FEMORAL NECK FRACTURE [None]
  - HYPERGLYCAEMIA [None]
  - HYPOGLYCAEMIA [None]
